FAERS Safety Report 6722081-2 (Version None)
Quarter: 2010Q2

REPORT INFORMATION
  Report Type: 
  Country: None (occurrence: None)
  Receive Date: 20100512
  Receipt Date: 20100428
  Transmission Date: 20101027
  Serious: Yes (Other)
  Sender: FDA-Public Use
  Company Number: ES-ELI_LILLY_AND_COMPANY-ES201004007939

PATIENT
  Sex: Female
  Weight: 80 kg

DRUGS (3)
  1. FORTEO [Suspect]
     Indication: OSTEOPOROSIS
     Dosage: 20 UG, DAILY (1/D)
     Route: 058
     Dates: start: 20100208, end: 20100427
  2. HIDROFEROL [Concomitant]
     Dosage: 1 D/F, MONTH
     Route: 048
  3. ENANTYUM [Concomitant]
     Dosage: 1 D/F, DAILY (1/D)
     Route: 048

REACTIONS (3)
  - BLOOD GLUCOSE INCREASED [None]
  - LOW DENSITY LIPOPROTEIN INCREASED [None]
  - METASTASES TO BONE [None]
